FAERS Safety Report 12322048 (Version 2)
Quarter: 2016Q2

REPORT INFORMATION
  Report Type: Spontaneous
  Country: JP (occurrence: JP)
  Receive Date: 20160502
  Receipt Date: 20160524
  Transmission Date: 20160815
  Serious: Yes (Hospitalization, Other)
  Sender: FDA-Public Use
  Company Number: JP-GLAXOSMITHKLINE-JP2016JPN059353

PATIENT
  Age: 67 Year
  Sex: Female
  Weight: 53 kg

DRUGS (7)
  1. MAGNESIUM OXIDE. [Concomitant]
     Active Substance: MAGNESIUM OXIDE
     Dosage: 990 MG, TID
     Dates: start: 20160421
  2. PREDONINE [Concomitant]
     Active Substance: PREDNISOLONE\PREDNISOLONE ACETATE\PREDNISOLONE SODIUM SUCCINATE
  3. CALONAL TABLET [Concomitant]
     Indication: FACIAL PAIN
     Dosage: 400 MG, PRN
     Dates: start: 20160418
  4. MUCOSTA TABLETS [Concomitant]
     Dosage: 300 MG, TID
     Dates: start: 20160421
  5. MIYA-BM FINE GRANULES [Concomitant]
     Dosage: 3 DF, TID
     Dates: start: 20160421
  6. VALTREX [Suspect]
     Active Substance: VALACYCLOVIR HYDROCHLORIDE
     Indication: HERPES ZOSTER
     Dosage: 1000 MG, BID
     Route: 048
     Dates: start: 20160418, end: 20160419
  7. TRAMCET [Concomitant]
     Active Substance: ACETAMINOPHEN\TRAMADOL
     Dosage: 4 DF, 1D
     Dates: start: 20160503

REACTIONS (7)
  - Malaise [Unknown]
  - Hypophagia [Unknown]
  - Renal impairment [Recovering/Resolving]
  - Tubulointerstitial nephritis [Recovering/Resolving]
  - Acute kidney injury [Recovered/Resolved]
  - Nausea [Unknown]
  - Lymphocytic infiltration [Unknown]

NARRATIVE: CASE EVENT DATE: 20160418
